FAERS Safety Report 5033065-7 (Version None)
Quarter: 2006Q2

REPORT INFORMATION
  Report Type: 
  Country: None (occurrence: None)
  Receive Date: 20060620
  Receipt Date: 20060602
  Transmission Date: 20061013
  Serious: Yes (Hospitalization, Other)
  Sender: FDA-Public Use
  Company Number: US200606001137

PATIENT
  Age: 82 Year
  Sex: Male

DRUGS (1)
  1. HUMULIN 70/30 [Suspect]
     Indication: DIABETES MELLITUS
     Dosage: 100 U, DAILY (1/D)
     Dates: start: 19960101

REACTIONS (7)
  - CEREBROVASCULAR ACCIDENT [None]
  - CORONARY ARTERY DISEASE [None]
  - HIP ARTHROPLASTY [None]
  - INTESTINAL RESECTION [None]
  - KIDNEY INFECTION [None]
  - NEPHROLITHIASIS [None]
  - ROTATOR CUFF REPAIR [None]
